FAERS Safety Report 5186317-4 (Version None)
Quarter: 2006Q4

REPORT INFORMATION
  Report Type: 
  Country: None (occurrence: None)
  Receive Date: 20061220
  Receipt Date: 20061024
  Transmission Date: 20070319
  Serious: Yes (Hospitalization, Other)
  Sender: FDA-Public Use
  Company Number: US-ELI_LILLY_AND_COMPANY-US200610004200

PATIENT
  Age: 64 Year
  Sex: Male

DRUGS (6)
  1. LANTUS [Concomitant]
     Dosage: UNK, UNKNOWN
     Dates: start: 20050101
  2. VASOTEC [Concomitant]
     Dosage: UNK, UNKNOWN
  3. LIPITOR [Concomitant]
     Dosage: UNK, UNKNOWN
  4. PLAVIX                                  /UNK/ [Concomitant]
     Dosage: UNK, UNKNOWN
  5. HUMALOG [Suspect]
     Indication: DIABETES MELLITUS
     Dosage: UNK, OTHER
     Dates: start: 20050101
  6. HUMULIN 70/30 [Suspect]
     Indication: DIABETES MELLITUS
     Dosage: UNK, UNKNOWN
     Dates: end: 20050101

REACTIONS (7)
  - BLOOD GLUCOSE INCREASED [None]
  - DISORIENTATION [None]
  - HYPERTENSION [None]
  - HYPOGLYCAEMIA [None]
  - LOSS OF CONSCIOUSNESS [None]
  - ROAD TRAFFIC ACCIDENT [None]
  - SHOCK [None]
